FAERS Safety Report 6916602-4 (Version None)
Quarter: 2010Q3

REPORT INFORMATION
  Report Type: 
  Country: None (occurrence: None)
  Receive Date: 20100809
  Receipt Date: 20100809
  Transmission Date: 20110219
  Serious: Yes (Other)
  Sender: FDA-Public Use
  Company Number: None

PATIENT
  Sex: Female
  Weight: 80.2867 kg

DRUGS (3)
  1. SUTENT [Suspect]
     Indication: RENAL CELL CARCINOMA
     Dates: start: 20100528, end: 20100622
  2. MAXZIDE [Suspect]
     Indication: HYPERTENSION
  3. LISINOPRIL [Concomitant]

REACTIONS (4)
  - FATIGUE [None]
  - HYPONATRAEMIA [None]
  - LETHARGY [None]
  - RENAL FAILURE [None]
